FAERS Safety Report 5593700-1 (Version None)
Quarter: 2008Q1

REPORT INFORMATION
  Report Type: 
  Country: None (occurrence: None)
  Receive Date: 20080116
  Receipt Date: 20080110
  Transmission Date: 20080703
  Serious: Yes (Hospitalization)
  Sender: FDA-Public Use
  Company Number: US-SANOFI-SYNTHELABO-F01200701291

PATIENT
  Sex: Female
  Weight: 56.7 kg

DRUGS (7)
  1. BEVACIZUMAB [Suspect]
     Route: 041
     Dates: start: 20071001, end: 20071001
  2. DOCETAXEL [Suspect]
     Route: 041
     Dates: start: 20071001, end: 20071001
  3. OXALIPLATIN [Suspect]
     Indication: OVARIAN CANCER
     Route: 041
     Dates: start: 20071001, end: 20071001
  4. MOTRIN [Concomitant]
     Dosage: UNK
  5. DARVOCET-N 100 [Concomitant]
     Dosage: 100 MG- 650 MG
     Route: 048
  6. VYTORIN [Concomitant]
     Dosage: 10/20 MG
     Route: 048
  7. XANAX [Concomitant]
     Route: 048

REACTIONS (1)
  - INTESTINAL PERFORATION [None]
